FAERS Safety Report 8824651 (Version 1)
Quarter: 2012Q4

REPORT INFORMATION
  Report Type: 
  Country: JP (occurrence: JP)
  Receive Date: 20121004
  Receipt Date: 20121004
  Transmission Date: 20130627
  Serious: Yes (Hospitalization)
  Sender: FDA-Public Use
  Company Number: PHHY2012JP086331

PATIENT
  Age: 70 Year
  Sex: Male

DRUGS (3)
  1. FAMVIR [Suspect]
     Indication: HERPES ZOSTER
     Dosage: 500 mg, TID
     Route: 048
  2. ETODOLAC [Suspect]
     Indication: HERPES ZOSTER
     Dosage: 200 mg, BID
     Route: 048
  3. BIO-THREE [Concomitant]
     Dosage: 3 DF, UNK
     Route: 048

REACTIONS (1)
  - Rhabdomyolysis [Recovering/Resolving]
